FAERS Safety Report 4761404-0 (Version None)
Quarter: 2005Q3

REPORT INFORMATION
  Report Type: 
  Country: None (occurrence: None)
  Receive Date: 20050902
  Receipt Date: 20050902
  Transmission Date: 20060218
  Serious: Yes (Life-Threatening)
  Sender: FDA-Public Use
  Company Number: None

PATIENT
  Age: 49 Year
  Sex: Male
  Weight: 72.1219 kg

DRUGS (1)
  1. ZYPREXA [Suspect]
     Indication: LABORATORY TEST
     Dosage: 1     1     PO;   5        PO
     Route: 048
     Dates: start: 20010301, end: 20031128

REACTIONS (3)
  - DIABETES MELLITUS [None]
  - EYE DISORDER [None]
  - MUSCULOSKELETAL DISORDER [None]
